FAERS Safety Report 7282131-4 (Version None)
Quarter: 2011Q1

REPORT INFORMATION
  Report Type: 
  Country: None (occurrence: None)
  Receive Date: 20110208
  Receipt Date: 20110204
  Transmission Date: 20110831
  Serious: No
  Sender: FDA-Public Use
  Company Number: JP-PFIZER INC-2010156503

PATIENT
  Age: 9 Year
  Sex: Male
  Weight: 25 kg

DRUGS (5)
  1. MYLOTARG [Suspect]
     Dosage: 3 MG/M2, 1X/DAY
     Route: 041
     Dates: start: 20091204, end: 20091204
  2. ARSENIC TRIOXIDE [Concomitant]
     Indication: ACUTE PROMYELOCYTIC LEUKAEMIA
     Dosage: 0.15 MG/KG, 1X/DAY
     Dates: start: 20091001, end: 20090101
  3. MYLOTARG [Suspect]
     Indication: ACUTE PROMYELOCYTIC LEUKAEMIA
     Dosage: 3 MG/M2, 1X/DAY
     Route: 041
     Dates: start: 20091201, end: 20091201
  4. MYLOTARG [Suspect]
     Dosage: 3 MG/M2, 1X/DAY
     Route: 041
     Dates: start: 20091208, end: 20091208
  5. ARSENIC TRIOXIDE [Concomitant]
     Dosage: 4 MG, 1X/DAY
     Route: 041
     Dates: start: 20091020, end: 20091216

REACTIONS (1)
  - INFUSION RELATED REACTION [None]
